FAERS Safety Report 7495216-4 (Version None)
Quarter: 2011Q2

REPORT INFORMATION
  Report Type: 
  Country: None (occurrence: None)
  Receive Date: 20110522
  Receipt Date: 20110509
  Transmission Date: 20111010
  Serious: Yes (Hospitalization)
  Sender: FDA-Public Use
  Company Number: US-ELI_LILLY_AND_COMPANY-US201102000650

PATIENT
  Sex: Female

DRUGS (14)
  1. BISCODYL [Concomitant]
  2. IBUPROFEN [Concomitant]
  3. SENNA-MINT WAF [Concomitant]
  4. OXYCONTIN [Concomitant]
  5. ESOMEPRAZOLE MAGNESIUM [Concomitant]
  6. ENOXAPARIN [Concomitant]
  7. AMITRIPTYLLIN [Concomitant]
  8. CALCIUM WITH VITAMIN D [Concomitant]
  9. LIDOCAINE [Concomitant]
  10. FORTEO [Suspect]
     Indication: OSTEOPOROSIS
     Dosage: 20 UG, DAILY (1/D)
     Route: 065
  11. TYLENOL                                 /SCH/ [Concomitant]
  12. GABAPENTIN [Concomitant]
  13. METAXALONE [Concomitant]
  14. PREGABALIN [Concomitant]

REACTIONS (1)
  - PAIN IN EXTREMITY [None]
